FAERS Safety Report 22051641 (Version 1)
Quarter: 2023Q1

REPORT INFORMATION
  Report Type: Spontaneous
  Country: FR (occurrence: FR)
  Receive Date: 20230302
  Receipt Date: 20230302
  Transmission Date: 20230418
  Serious: Yes (Other)
  Sender: FDA-Public Use
  Company Number: FR-SLATE RUN PHARMACEUTICALS-23FR001512

PATIENT

DRUGS (8)
  1. VORICONAZOLE [Suspect]
     Active Substance: VORICONAZOLE
     Indication: Candida infection
     Dosage: 6 MILLIGRAM PER KILOGRAM, Q 12 HR
  2. VORICONAZOLE [Suspect]
     Active Substance: VORICONAZOLE
     Dosage: 4 MILLIGRAM PER KILOGRAM, Q 12 HR
  3. CEFOTAXIME [Concomitant]
     Active Substance: CEFOTAXIME SODIUM
     Indication: Candida infection
  4. AMOXICILLIN [Concomitant]
     Active Substance: AMOXICILLIN
     Indication: Candida infection
  5. RIFAMPIN [Concomitant]
     Active Substance: RIFAMPIN
     Indication: Tuberculosis
  6. ISONIAZID [Concomitant]
     Active Substance: ISONIAZID
     Indication: Tuberculosis
  7. ETHAMBUTOL [Concomitant]
     Active Substance: ETHAMBUTOL HYDROCHLORIDE
     Indication: Tuberculosis
  8. PYRAZINAMIDE [Concomitant]
     Active Substance: PYRAZINAMIDE
     Indication: Tuberculosis

REACTIONS (5)
  - Encephalitis [Unknown]
  - Myelitis [Unknown]
  - Central nervous system vasculitis [Unknown]
  - Cerebellar infarction [Unknown]
  - Drug interaction [Unknown]
